FAERS Safety Report 16205075 (Version 1)
Quarter: 2019Q2

REPORT INFORMATION
  Report Type: Spontaneous
  Country: US (occurrence: US)
  Receive Date: 20190416
  Receipt Date: 20190416
  Transmission Date: 20190711
  Serious: No
  Sender: FDA-Public Use
  Company Number: US-CHILTERN-US-2019-000377

PATIENT
  Age: 34 Year
  Sex: Female
  Weight: 63 kg

DRUGS (3)
  1. PRENATAL                           /00231801/ [Concomitant]
     Active Substance: VITAMINS
     Indication: PREGNANCY
     Dosage: UNK
     Dates: start: 201901
  2. DICLEGIS [Concomitant]
     Active Substance: DOXYLAMINE SUCCINATE\PYRIDOXINE HYDROCHLORIDE
     Indication: MALAISE
     Dosage: UNK
  3. RHOPRESSA [Suspect]
     Active Substance: NETARSUDIL MESYLATE
     Indication: NORMAL TENSION GLAUCOMA
     Dosage: 2 GTT, QD
     Route: 047
     Dates: start: 20181105, end: 20190108

REACTIONS (4)
  - Conjunctivitis allergic [Recovering/Resolving]
  - Off label use [Unknown]
  - Exposure during pregnancy [Unknown]
  - Meibomian gland dysfunction [Recovering/Resolving]

NARRATIVE: CASE EVENT DATE: 201812
